FAERS Safety Report 4605205-2 (Version None)
Quarter: 2005Q1

REPORT INFORMATION
  Report Type: 
  Country: None (occurrence: None)
  Receive Date: 20050311
  Receipt Date: 20050216
  Transmission Date: 20050727
  Serious: Yes (Other)
  Sender: FDA-Public Use
  Company Number: RU-NOVOPROD-242377

PATIENT
  Age: 0 Day
  Sex: Male
  Weight: 3 kg

DRUGS (26)
  1. NOVORAPID PENFILL 3.0 ML [Suspect]
     Indication: DIABETES MELLITUS INSULIN-DEPENDENT
     Dosage: 28 IU, QD
     Route: 015
     Dates: start: 20040803
  2. NOVORAPID PENFILL 3.0 ML [Suspect]
     Dosage: 32 IU, QD
     Route: 015
     Dates: start: 20050210, end: 20050210
  3. NOVORAPID PENFILL 3.0 ML [Suspect]
     Dosage: 19 IU, QD
     Route: 015
     Dates: start: 20050211, end: 20050211
  4. PROTAPHAN PENFILL [Concomitant]
     Indication: DIABETES MELLITUS INSULIN-DEPENDENT
     Dosage: 34 IU, QD
     Route: 015
     Dates: start: 20040803
  5. PROTAPHAN PENFILL [Concomitant]
     Dosage: 44 IU, QD
     Route: 015
     Dates: start: 20050210, end: 20050210
  6. PROTAPHAN PENFILL [Concomitant]
     Dosage: 6 IU, QD
     Route: 015
     Dates: start: 20050211, end: 20050211
  7. OXYGEN [Concomitant]
     Indication: NEONATAL ASPHYXIA
     Dosage: UNK, UNK
     Route: 045
     Dates: start: 20050211, end: 20050211
  8. NIKETHAMIDE [Concomitant]
     Indication: NEONATAL ASPHYXIA
     Dosage: .2 ML, QD
     Route: 058
     Dates: start: 20050211, end: 20050211
  9. NIKETHAMIDE [Concomitant]
     Dosage: .5 ML, QD
     Route: 042
     Dates: start: 20050214, end: 20050214
  10. MENADIONE SODIUM BISULFITE [Concomitant]
     Indication: NEONATAL ASPHYXIA
     Dosage: .5 ML, QD
     Route: 030
     Dates: start: 20050211, end: 20050211
  11. DIPYRONE INJ [Concomitant]
     Indication: NEONATAL ASPHYXIA
     Dosage: .1 ML, QD
     Route: 030
     Dates: start: 20050211, end: 20050211
  12. DIMEDROL [Concomitant]
     Indication: NEONATAL ASPHYXIA
     Dosage: .3 ML, QD
     Route: 030
     Dates: start: 20050211, end: 20050211
  13. RELANIUM [Concomitant]
     Indication: NEONATAL ASPHYXIA
     Dosage: .6 ML, QD
     Route: 030
     Dates: start: 20050211, end: 20050211
  14. CEFOTAXIME [Concomitant]
     Indication: PROPHYLAXIS
     Dosage: 260.000 IU
     Route: 042
     Dates: start: 20050211, end: 20050214
  15. ETHAMSYLATE [Concomitant]
     Indication: PROPHYLAXIS
     Dosage: 2 ML, QD
     Route: 042
     Dates: start: 20050211, end: 20050214
  16. PHENOBARBITAL [Concomitant]
     Indication: HYPOXIA
     Dosage: .015 G, QD
     Route: 048
     Dates: start: 20050211, end: 20050214
  17. DEXMETHSONE [Concomitant]
     Indication: HYPOXIA
     Dosage: .6 ML, QD
     Route: 042
     Dates: start: 20050211, end: 20050214
  18. MAGNESIUM SULFATE [Concomitant]
     Indication: HYPOXIA
     Dosage: 1.5 - 2.0 ML
     Route: 042
     Dates: start: 20050211, end: 20050214
  19. CALCIUM GLUCONATE [Concomitant]
     Indication: HYPOXIA
     Dosage: 1.5 - 2.5 ML
     Route: 042
     Dates: start: 20050211, end: 20050214
  20. DOPAMINE [Concomitant]
     Indication: URINARY RETENTION
     Dosage: 9 MG, QD
     Route: 042
     Dates: start: 20050211, end: 20050212
  21. NYSTATIN [Concomitant]
     Indication: PROPHYLAXIS
     Dosage: 300000 U, QD
     Route: 048
     Dates: start: 20050211, end: 20050214
  22. GLUCOSE [Concomitant]
     Indication: HYPOXIA
     Dosage: 40 ML, QD
     Route: 042
     Dates: start: 20050211, end: 20050214
  23. ASCORBIC ACID [Concomitant]
     Indication: HYPOXIA
     Dosage: .5 ML, QD
     Route: 042
     Dates: start: 20050214, end: 20050214
  24. PANANGIN [Concomitant]
     Indication: HYPOXIA
     Dosage: 2 ML, QD
     Route: 042
     Dates: start: 20050211, end: 20050211
  25. PREGNAVITE [Concomitant]
     Route: 015
     Dates: start: 20040721, end: 20041009
  26. VITAMINS NOS [Concomitant]
     Route: 015
     Dates: start: 20041010

REACTIONS (4)
  - HYPOGLYCAEMIA NEONATAL [None]
  - MATERNAL DRUGS AFFECTING FOETUS [None]
  - NEONATAL ASPHYXIA [None]
  - PREMATURE BABY [None]
